FAERS Safety Report 5328980-0 (Version None)
Quarter: 2007Q2

REPORT INFORMATION
  Report Type: 
  Country: None (occurrence: None)
  Receive Date: 20070515
  Receipt Date: 20070430
  Transmission Date: 20071010
  Serious: Yes (Other)
  Sender: FDA-Public Use
  Company Number: 36542

PATIENT

DRUGS (1)
  1. METOPROLOL TARTRATE [Suspect]

REACTIONS (2)
  - DRUG DISPENSING ERROR [None]
  - INTERCEPTED DRUG ADMINISTRATION ERROR [None]
